FAERS Safety Report 5888585-X (Version None)
Quarter: 2008Q3

REPORT INFORMATION
  Report Type: 
  Country: None (occurrence: None)
  Receive Date: 20080916
  Receipt Date: 20080905
  Transmission Date: 20090109
  Serious: Yes (Congenital Anomaly)
  Sender: FDA-Public Use
  Company Number: 2008AL002853

PATIENT
  Age: 33 Year
  Sex: Female

DRUGS (6)
  1. CITALOPRAM HYDROBROMIDE [Suspect]
     Indication: DEPRESSION
     Dosage: 10 MG; PO
     Route: 048
     Dates: start: 20070416, end: 20080101
  2. IBUPROFEN [Concomitant]
  3. ACETAMINOPHEN W/ CODEINE [Concomitant]
  4. CLOTRIMAZOLE [Concomitant]
  5. SODIUM ALGINATE [Concomitant]
  6. POTASSIUM BICARBONATE [Concomitant]

REACTIONS (3)
  - ABORTION INDUCED [None]
  - MATERNAL DRUGS AFFECTING FOETUS [None]
  - MULTIPLE CONGENITAL ABNORMALITIES [None]
